FAERS Safety Report 5897849-5 (Version None)
Quarter: 2008Q3

REPORT INFORMATION
  Report Type: 
  Country: None (occurrence: None)
  Receive Date: 20080925
  Receipt Date: 20080919
  Transmission Date: 20090109
  Serious: Yes (Disabling, Other)
  Sender: FDA-Public Use
  Company Number: US-CELGENEUS-163-20785-08041479

PATIENT
  Sex: Male

DRUGS (7)
  1. THALOMID [Suspect]
     Indication: APHTHOUS STOMATITIS
     Route: 048
     Dates: start: 20080422, end: 20080901
  2. THALOMID [Suspect]
     Route: 048
     Dates: start: 20080228, end: 20080401
  3. THALOMID [Suspect]
     Dosage: 100MG-200MG
     Route: 048
     Dates: start: 20061204, end: 20080201
  4. COMBIVIR [Concomitant]
     Indication: HIV INFECTION
     Route: 065
     Dates: start: 20000101
  5. VIRAMUNE [Concomitant]
     Indication: HIV INFECTION
     Route: 065
     Dates: start: 20000101
  6. DIAMOX [Concomitant]
     Indication: INTRACRANIAL PRESSURE INCREASED
     Route: 065
     Dates: start: 20070601
  7. PREDNISONE [Concomitant]
     Indication: DRUG USE FOR UNKNOWN INDICATION
     Route: 065

REACTIONS (10)
  - DIPLOPIA [None]
  - GENITAL ULCERATION [None]
  - HEADACHE [None]
  - INTRACRANIAL PRESSURE INCREASED [None]
  - MOUTH ULCERATION [None]
  - NEUROPATHY PERIPHERAL [None]
  - PAPILLOEDEMA [None]
  - PAROSMIA [None]
  - VISUAL ACUITY REDUCED [None]
  - VISUAL FIELD DEFECT [None]
